FAERS Safety Report 7686305-X (Version None)
Quarter: 2011Q3

REPORT INFORMATION
  Report Type: 
  Country: None (occurrence: None)
  Receive Date: 20110816
  Receipt Date: 20110812
  Transmission Date: 20111222
  Serious: Yes (Other)
  Sender: FDA-Public Use
  Company Number: SE-PFIZER INC-2011168070

PATIENT
  Sex: Male

DRUGS (1)
  1. CAVERJECT IMPULSE [Suspect]
     Dosage: 10 UG, UNK

REACTIONS (4)
  - AREFLEXIA [None]
  - SENSORY DISTURBANCE [None]
  - MUSCLE SPASMS [None]
  - DIZZINESS [None]
